FAERS Safety Report 17895302 (Version 1)
Quarter: 2020Q2

REPORT INFORMATION
  Report Type: Spontaneous
  Country: DE (occurrence: DE)
  Receive Date: 20200615
  Receipt Date: 20200615
  Transmission Date: 20200714
  Serious: Yes (Hospitalization, Other)
  Sender: FDA-Public Use
  Company Number: DE-AMGEN-DEUSP2020094085

PATIENT
  Age: 75 Year
  Sex: Male
  Weight: 81 kg

DRUGS (10)
  1. BISOPROLOL [Concomitant]
     Active Substance: BISOPROLOL
     Dosage: 2.5 MILLIGRAM,, 1-0-0-0
  2. NEULASTA [Suspect]
     Active Substance: PEGFILGRASTIM
     Indication: PRODUCT USED FOR UNKNOWN INDICATION
     Dosage: 6 MILLIGRAM
     Route: 058
  3. ACETYLSALICYLSAEURE [Concomitant]
     Active Substance: ASPIRIN
     Dosage: 100 MILLIGRAM, 1-0-0-0
  4. CANDESARTAN. [Concomitant]
     Active Substance: CANDESARTAN
     Dosage: 16 MILLIGRAM, 0-0-1-0
  5. CLOPIDOGREL [Concomitant]
     Active Substance: CLOPIDOGREL BISULFATE
     Dosage: 75 MILLIGRAM, 1-0-0-0
  6. RITUXAN [Suspect]
     Active Substance: RITUXIMAB
     Indication: PRODUCT USED FOR UNKNOWN INDICATION
     Dosage: 375 MILLIGRAM/SQ. METER
     Route: 065
  7. BENDAMUSTINE [Suspect]
     Active Substance: BENDAMUSTINE
     Indication: PRODUCT USED FOR UNKNOWN INDICATION
     Dosage: 90 MILLIGRAM/SQ. METER
     Route: 065
  8. METAMIZOLE [Concomitant]
     Active Substance: METAMIZOLE
     Dosage: 30-30-30-0, TROPFEN DROPS
  9. ATORVASTATIN [Concomitant]
     Active Substance: ATORVASTATIN
     Dosage: 40 MILLIGRAM, 1-0-0-0
  10. HYDROCHLOROTHIAZID [Concomitant]
     Active Substance: HYDROCHLOROTHIAZIDE
     Dosage: 12.5 MILLIGRAM, 1-0-0-0

REACTIONS (8)
  - Systemic infection [Unknown]
  - Pyrexia [Unknown]
  - Cough [Unknown]
  - Vomiting [Unknown]
  - General physical health deterioration [Unknown]
  - Asthenia [Unknown]
  - Retching [Unknown]
  - Decreased appetite [Unknown]
